FAERS Safety Report 4505913-8 (Version None)
Quarter: 2004Q4

REPORT INFORMATION
  Report Type: 
  Country: None (occurrence: None)
  Receive Date: 20041025
  Receipt Date: 20031020
  Transmission Date: 20050328
  Serious: Yes (Death, Hospitalization)
  Sender: FDA-Public Use
  Company Number: US-JNJFOC-20030900936

PATIENT
  Age: 63 Year
  Sex: Female
  Weight: 56.246 kg

DRUGS (16)
  1. REMICADE [Suspect]
     Indication: RHEUMATOID ARTHRITIS
     Dosage: 500 MG, INTRAVENOUS; SEE IMAGE
     Route: 042
     Dates: start: 20010618
  2. REMICADE [Suspect]
     Indication: RHEUMATOID ARTHRITIS
     Dosage: 500 MG, INTRAVENOUS; SEE IMAGE
     Route: 042
     Dates: start: 20011009
  3. REMICADE [Suspect]
     Indication: RHEUMATOID ARTHRITIS
     Dosage: 500 MG, INTRAVENOUS; SEE IMAGE
     Route: 042
     Dates: start: 20011210
  4. REMICADE [Suspect]
     Indication: RHEUMATOID ARTHRITIS
     Dosage: 500 MG, INTRAVENOUS; SEE IMAGE
     Route: 042
     Dates: start: 20020218
  5. REMICADE [Suspect]
     Indication: RHEUMATOID ARTHRITIS
     Dosage: 500 MG, INTRAVENOUS; SEE IMAGE
     Route: 042
     Dates: start: 20020627
  6. REMICADE [Suspect]
     Indication: RHEUMATOID ARTHRITIS
     Dosage: 500 MG, INTRAVENOUS; SEE IMAGE
     Route: 042
     Dates: start: 20021213
  7. REMICADE [Suspect]
     Indication: RHEUMATOID ARTHRITIS
     Dosage: 500 MG, INTRAVENOUS; SEE IMAGE
     Route: 042
     Dates: start: 20021223
  8. REMICADE [Suspect]
     Indication: RHEUMATOID ARTHRITIS
     Dosage: 500 MG, INTRAVENOUS; SEE IMAGE
     Route: 042
     Dates: start: 20030129
  9. REMICADE [Suspect]
     Indication: RHEUMATOID ARTHRITIS
     Dosage: 500 MG, INTRAVENOUS; SEE IMAGE
     Route: 042
     Dates: start: 20030318
  10. REMICADE [Suspect]
     Indication: RHEUMATOID ARTHRITIS
     Dosage: 500 MG, INTRAVENOUS; SEE IMAGE
     Route: 042
     Dates: start: 20030429
  11. REMICADE [Suspect]
     Indication: RHEUMATOID ARTHRITIS
     Dosage: 500 MG, INTRAVENOUS; SEE IMAGE
     Route: 042
     Dates: start: 20030610
  12. REMICADE [Suspect]
     Indication: RHEUMATOID ARTHRITIS
     Dosage: 500 MG, INTRAVENOUS; SEE IMAGE
     Route: 042
     Dates: start: 20030722
  13. PLAQUENIL [Concomitant]
  14. METHOTREXATE [Concomitant]
  15. NEORAL [Concomitant]
  16. CELEBREX [Concomitant]

REACTIONS (2)
  - BRONCHITIS [None]
  - LOWER RESPIRATORY TRACT INFECTION [None]
